FAERS Safety Report 5123649-X (Version None)
Quarter: 2006Q4

REPORT INFORMATION
  Report Type: 
  Country: None (occurrence: None)
  Receive Date: 20060910
  Receipt Date: 20050719
  Transmission Date: 20070319
  Serious: Yes (Other)
  Sender: FDA-Public Use
  Company Number: US_030997866

PATIENT
  Age: 48 Year
  Sex: Female

DRUGS (5)
  1. HUMULIN L [Suspect]
     Indication: DIABETES MELLITUS
     Dosage: 10 U, 2/D, SUBCUTANEOUS
     Route: 058
  2. HUMULIN R [Suspect]
     Indication: DIABETES MELLITUS
     Dosage: AS NEEDED, SUBCUTANEOUS
     Route: 058
  3. HUMULIN L [Suspect]
     Indication: DIABETES MELLITUS
     Dosage: AS NEEDED, SUBCUTANEOUS
     Route: 058
  4. ILETIN [Suspect]
  5. ILETIN [Suspect]

REACTIONS (7)
  - BLOOD GLUCOSE DECREASED [None]
  - CATARACT [None]
  - HYPOGLYCAEMIA UNAWARENESS [None]
  - INFLUENZA [None]
  - LOSS OF CONSCIOUSNESS [None]
  - RETINOPATHY [None]
  - VISUAL ACUITY REDUCED [None]
